FAERS Safety Report 8216082-5 (Version None)
Quarter: 2012Q1

REPORT INFORMATION
  Report Type: 
  Country: None (occurrence: None)
  Receive Date: 20120229
  Receipt Date: 20110627
  Transmission Date: 20120608
  Serious: Yes (Other)
  Sender: FDA-Public Use
  Company Number: PHHY2011US57342

PATIENT
  Age: 60 Year
  Sex: Female
  Weight: 63 kg

DRUGS (1)
  1. NEORAL [Suspect]
     Indication: LUNG TRANSPLANT
     Dosage: 75 MG, BID, ORAL
     Route: 048
     Dates: start: 20091101

REACTIONS (4)
  - RESPIRATORY FAILURE [None]
  - BRONCHIAL DISORDER [None]
  - FORCED EXPIRATORY VOLUME DECREASED [None]
  - LUNG TRANSPLANT REJECTION [None]
